FAERS Safety Report 14617468 (Version 1)
Quarter: 2018Q1

REPORT INFORMATION
  Report Type: Spontaneous
  Country: FR (occurrence: FR)
  Receive Date: 20180309
  Receipt Date: 20180309
  Transmission Date: 20180509
  Serious: Yes (Other)
  Sender: FDA-Public Use
  Company Number: FR-ABBVIE-18P-056-2276394-00

PATIENT
  Age: 81 Year
  Sex: Male

DRUGS (1)
  1. DEPAKINE [Suspect]
     Active Substance: VALPROATE SODIUM
     Indication: DEMENTIA WITH LEWY BODIES
     Route: 048
     Dates: start: 201712

REACTIONS (7)
  - Coma [Not Recovered/Not Resolved]
  - Thermal burn [Not Recovered/Not Resolved]
  - Product use in unapproved indication [Unknown]
  - Eyelid disorder [Not Recovered/Not Resolved]
  - Blister [Not Recovered/Not Resolved]
  - Erythema [Unknown]
  - Dysphagia [Not Recovered/Not Resolved]

NARRATIVE: CASE EVENT DATE: 201712
